FAERS Safety Report 25223729 (Version 1)
Quarter: 2025Q2

REPORT INFORMATION
  Report Type: Spontaneous
  Country: NL (occurrence: NL)
  Receive Date: 20250422
  Receipt Date: 20250422
  Transmission Date: 20250717
  Serious: Yes (Death)
  Sender: ROCHE
  Company Number: NL-ROCHE-10000222649

PATIENT
  Sex: Male

DRUGS (1)
  1. ATEZOLIZUMAB [Suspect]
     Active Substance: ATEZOLIZUMAB
     Indication: Diffuse large B-cell lymphoma
     Route: 065
     Dates: start: 20250227, end: 202504

REACTIONS (2)
  - Off label use [Unknown]
  - Disease progression [Fatal]

NARRATIVE: CASE EVENT DATE: 20250227
